FAERS Safety Report 19085852 (Version 1)
Quarter: 2021Q2

REPORT INFORMATION
  Report Type: Spontaneous
  Country: US (occurrence: US)
  Receive Date: 20210402
  Receipt Date: 20210402
  Transmission Date: 20210717
  Serious: No
  Sender: FDA-Public Use
  Company Number: US-AJANTA PHARMA USA INC.-2108826

PATIENT
  Sex: Female

DRUGS (1)
  1. ELETRIPTAN HYDROBROMIDE (ANDA 205186) [Suspect]
     Active Substance: ELETRIPTAN HYDROBROMIDE

REACTIONS (1)
  - Product taste abnormal [Unknown]

NARRATIVE: CASE EVENT DATE: 2019
